FAERS Safety Report 5391090-0 (Version None)
Quarter: 2007Q3

REPORT INFORMATION
  Report Type: 
  Country: None (occurrence: None)
  Receive Date: 20070719
  Receipt Date: 20070710
  Transmission Date: 20080115
  Serious: Yes (Hospitalization, Other)
  Sender: FDA-Public Use
  Company Number: FR-JNJFOC-20070301051

PATIENT
  Age: 62 Year
  Sex: Male

DRUGS (11)
  1. LEVOFLOXACIN [Suspect]
     Indication: SINUSITIS
     Route: 048
     Dates: start: 20070110, end: 20070120
  2. GLUCOPHAGE [Concomitant]
     Indication: TYPE 1 DIABETES MELLITUS
     Route: 048
  3. AUGMENTIN '125' [Concomitant]
     Indication: BRONCHITIS
     Route: 065
     Dates: start: 20061216, end: 20061226
  4. COAPROVEL [Concomitant]
     Indication: HYPERTENSION
     Route: 048
  5. BEFIZAL [Concomitant]
     Indication: HYPERLIPIDAEMIA
     Route: 048
     Dates: start: 20070210, end: 20070516
  6. NOVORAPID [Concomitant]
     Indication: TYPE 1 DIABETES MELLITUS
     Route: 058
  7. LEVEMIR [Concomitant]
     Indication: TYPE 1 DIABETES MELLITUS
     Route: 065
  8. AURICULARUM [Concomitant]
     Indication: MYCOSIS FUNGOIDES
     Route: 065
  9. DOLIPRANE [Concomitant]
     Route: 065
  10. RHINOFLUIMUCIL [Concomitant]
     Indication: SINUSITIS
     Route: 065
  11. TRIFLUCAN [Concomitant]
     Indication: FUNGAL INFECTION
     Route: 048

REACTIONS (5)
  - ARTHRALGIA [None]
  - ISCHAEMIC CEREBRAL INFARCTION [None]
  - MYALGIA [None]
  - PAIN IN EXTREMITY [None]
  - TENDONITIS [None]
